FAERS Safety Report 9009180 (Version 6)
Quarter: 2014Q1

REPORT INFORMATION
  Report Type: Spontaneous
  Country: US (occurrence: US)
  Receive Date: 20130111
  Receipt Date: 20140129
  Transmission Date: 20141002
  Serious: Yes (Hospitalization, Other)
  Sender: FDA-Public Use
  Company Number: US-009507513-1301USA002959

PATIENT
  Sex: Female
  Weight: 77.98 kg

DRUGS (3)
  1. FOSAMAX [Suspect]
     Indication: OSTEOPOROSIS
     Dosage: 10 MG, UNK
     Route: 048
     Dates: start: 199510, end: 200110
  2. FOSAMAX [Suspect]
     Indication: OSTEOPOROSIS PROPHYLAXIS
     Dosage: 70 MG, UNK
     Route: 048
     Dates: start: 200110, end: 200803
  3. ALENDRONATE SODIUM [Suspect]
     Indication: OSTEOPOROSIS
     Dosage: 70 MG, UNK
     Route: 048
     Dates: start: 20080324, end: 20080423

REACTIONS (34)
  - Femur fracture [Recovered/Resolved]
  - Intramedullary rod insertion [Not Recovered/Not Resolved]
  - Knee arthroplasty [Unknown]
  - Spinal fusion surgery [Unknown]
  - Hypotension [Unknown]
  - Renal failure [Unknown]
  - Hypertension [Unknown]
  - Blood cholesterol increased [Unknown]
  - Angiopathy [Unknown]
  - Osteoarthritis [Unknown]
  - Bursitis [Unknown]
  - Neuropathy peripheral [Unknown]
  - Gait disturbance [Unknown]
  - Osteopenia [Unknown]
  - Pelvic fracture [Unknown]
  - Pubis fracture [Unknown]
  - Haemoglobin decreased [Unknown]
  - Arthralgia [Unknown]
  - Back pain [Not Recovered/Not Resolved]
  - Arthralgia [Unknown]
  - Anaemia [Unknown]
  - Herpes zoster [Unknown]
  - Fibromyalgia [Unknown]
  - Thrombosis [Unknown]
  - Hysterectomy [Unknown]
  - Breast lump removal [Unknown]
  - Multiple sclerosis [Unknown]
  - Joint injury [Unknown]
  - Craniocerebral injury [Unknown]
  - Arthralgia [Unknown]
  - Arthralgia [Unknown]
  - Muscle strain [Unknown]
  - Cerebrovascular accident [Unknown]
  - Renal failure chronic [Unknown]
